FAERS Safety Report 4937428-7 (Version None)
Quarter: 2006Q1

REPORT INFORMATION
  Report Type: 
  Country: None (occurrence: None)
  Receive Date: 20060302
  Receipt Date: 20060214
  Transmission Date: 20060701
  Serious: Yes (Hospitalization)
  Sender: FDA-Public Use
  Company Number: ES200602002928

PATIENT
  Age: 84 Year
  Sex: Female

DRUGS (3)
  1. FORTEO [Suspect]
     Indication: OSTEOPOROSIS
     Dosage: 20 U, DAILY (1/D), SUBCUTANEOUS
     Route: 058
     Dates: start: 20060124, end: 20060207
  2. FORTEO [Concomitant]
  3. CORTISONE ACETATE [Concomitant]

REACTIONS (2)
  - PYREXIA [None]
  - RED BLOOD CELL SEDIMENTATION RATE INCREASED [None]
